FAERS Safety Report 4855031-4 (Version None)
Quarter: 2005Q4

REPORT INFORMATION
  Report Type: 
  Country: None (occurrence: None)
  Receive Date: 20051125
  Receipt Date: 20050823
  Transmission Date: 20060501
  Serious: No
  Sender: FDA-Public Use
  Company Number: 2005US002649

PATIENT
  Age: 35 Year
  Sex: Female
  Weight: 54.4 kg

DRUGS (5)
  1. ALOXI [Suspect]
     Indication: PROPHYLAXIS OF NAUSEA AND VOMITING
     Dosage: SEE IMAGE, INTRAVENOUS
     Route: 042
     Dates: start: 20050701, end: 20050801
  2. ALOXI [Suspect]
     Indication: PROPHYLAXIS OF NAUSEA AND VOMITING
     Dosage: SEE IMAGE, INTRAVENOUS
     Route: 042
     Dates: start: 20050822, end: 20050822
  3. ADRIAMYCIN PFS [Concomitant]
  4. CYTOXAN [Concomitant]
  5. EMEND [Concomitant]

REACTIONS (2)
  - DRUG INEFFECTIVE [None]
  - NAUSEA [None]
